FAERS Safety Report 22232558 (Version 1)
Quarter: 2023Q2

REPORT INFORMATION
  Report Type: Spontaneous
  Country: US (occurrence: None)
  Receive Date: 20230420
  Receipt Date: 20230420
  Transmission Date: 20230721
  Serious: No
  Sender: FDA-Public Use
  Company Number: US-ROCHE-3075290

PATIENT
  Age: 83 Year
  Sex: Male

DRUGS (2)
  1. ESBRIET [Suspect]
     Active Substance: PIRFENIDONE
     Indication: Idiopathic pulmonary fibrosis
     Dosage: 1 TABLET THREE TIMES DAILY
     Route: 048
     Dates: start: 20211123
  2. ESBRIET [Suspect]
     Active Substance: PIRFENIDONE
     Route: 065
     Dates: start: 202201

REACTIONS (6)
  - Rash [Not Recovered/Not Resolved]
  - Sunburn [Unknown]
  - Peripheral swelling [Unknown]
  - Dizziness [Unknown]
  - Oxygen saturation increased [Unknown]
  - Back pain [Not Recovered/Not Resolved]

NARRATIVE: CASE EVENT DATE: 20220419
